FAERS Safety Report 5645706-1 (Version None)
Quarter: 2008Q1

REPORT INFORMATION
  Report Type: 
  Country: None (occurrence: None)
  Receive Date: 20080229
  Receipt Date: 20080204
  Transmission Date: 20080703
  Serious: No
  Sender: FDA-Public Use
  Company Number: US-BOEHRINGER INGELHEIM GMBH, GERMANY-2008-BP-01699BP

PATIENT
  Sex: Male

DRUGS (3)
  1. MICARDIS HCT [Suspect]
     Indication: HYPERTENSION
     Route: 048
     Dates: start: 20060718, end: 20060801
  2. CLONIDINE [Concomitant]
     Indication: HYPERTENSION
  3. CHLORTHALIDONE [Concomitant]

REACTIONS (5)
  - AGEUSIA [None]
  - DIZZINESS [None]
  - DRUG INEFFECTIVE [None]
  - ERECTILE DYSFUNCTION [None]
  - URTICARIA [None]
